FAERS Safety Report 13212715 (Version 1)
Quarter: 2017Q1

REPORT INFORMATION
  Report Type: Spontaneous
  Country: US (occurrence: US)
  Receive Date: 20170210
  Receipt Date: 20170210
  Transmission Date: 20170428
  Serious: Yes (Hospitalization, Other)
  Sender: FDA-Public Use
  Company Number: US-PFIZER INC-2017051980

PATIENT
  Sex: Female

DRUGS (2)
  1. XELJANZ [Suspect]
     Active Substance: TOFACITINIB CITRATE
     Dosage: 5 MG, UNK
  2. XELJANZ [Suspect]
     Active Substance: TOFACITINIB CITRATE
     Dosage: 5 MG, 1X/DAY

REACTIONS (10)
  - Urinary tract infection [Unknown]
  - Early satiety [Unknown]
  - Arthralgia [Unknown]
  - Mental status changes [Unknown]
  - Synovitis [Unknown]
  - Back pain [Unknown]
  - Carpal tunnel syndrome [Unknown]
  - Intentional product misuse [Unknown]
  - Joint swelling [Unknown]
  - Fall [Unknown]
